FAERS Safety Report 8971732 (Version 1)
Quarter: 2012Q4

REPORT INFORMATION
  Report Type: 
  Country: ZA (occurrence: ZA)
  Receive Date: 20121217
  Receipt Date: 20121217
  Transmission Date: 20130627
  Serious: Yes (Hospitalization)
  Sender: FDA-Public Use
  Company Number: ZA-ASTRAZENECA-2012SE92231

PATIENT
  Sex: Male

DRUGS (6)
  1. SYMBICORD TURBUHALER [Suspect]
     Dosage: 16/4.5 mcg at unknown frequency
     Route: 055
  2. NEXIAM [Concomitant]
  3. CRESTOR [Concomitant]
  4. ATACAND [Concomitant]
  5. METHOTREXATE [Concomitant]
  6. MEDROL [Concomitant]

REACTIONS (1)
  - Oesophageal candidiasis [Unknown]
